FAERS Safety Report 17297231 (Version 2)
Quarter: 2020Q1

REPORT INFORMATION
  Report Type: Spontaneous
  Country: US (occurrence: US)
  Receive Date: 20200121
  Receipt Date: 20200124
  Transmission Date: 20200409
  Serious: No
  Sender: FDA-Public Use
  Company Number: US-BAYER-2020-010709

PATIENT
  Age: 69 Year
  Sex: Female

DRUGS (9)
  1. ASPIRIN (CARDIO) [Concomitant]
     Active Substance: ASPIRIN
     Dosage: 81 MG
  2. LEVOTHYROXINE. [Concomitant]
     Active Substance: LEVOTHYROXINE
  3. SIMVASTATIN. [Concomitant]
     Active Substance: SIMVASTATIN
  4. GARLIQUE [Concomitant]
     Active Substance: GARLIC
     Dosage: UNK
  5. VITAMINS NOS [Concomitant]
     Active Substance: VITAMINS
  6. BETASERON [Suspect]
     Active Substance: INTERFERON BETA-1B
     Indication: MULTIPLE SCLEROSIS
     Dosage: UNK
     Route: 058
     Dates: start: 2001
  7. OSTEO BI-FLEX [ASCORBIC ACID;BOSWELLIA SERRATA RESIN;CHONDROITIN S [Concomitant]
  8. SODIUM [Concomitant]
     Active Substance: SODIUM
  9. IBUPROFEN. [Concomitant]
     Active Substance: IBUPROFEN

REACTIONS (5)
  - Urinary incontinence [None]
  - Incorrect product administration duration [None]
  - Muscle twitching [None]
  - Memory impairment [None]
  - Disturbance in attention [None]
